FAERS Safety Report 6958214-2 (Version None)
Quarter: 2010Q3

REPORT INFORMATION
  Report Type: 
  Country: None (occurrence: None)
  Receive Date: 20100830
  Receipt Date: 20100830
  Transmission Date: 20110219
  Serious: No
  Sender: FDA-Public Use
  Company Number: None

PATIENT
  Age: 41 Year
  Sex: Female

DRUGS (1)
  1. OXALIPLATIN [Suspect]
     Indication: COLON CANCER
     Dosage: 170MG IVSS
     Dates: start: 20100823

REACTIONS (5)
  - DIZZINESS [None]
  - EAR DISCOMFORT [None]
  - HOT FLUSH [None]
  - NAUSEA [None]
  - VOMITING [None]
